FAERS Safety Report 16384125 (Version 2)
Quarter: 2019Q2

REPORT INFORMATION
  Report Type: Spontaneous
  Country: JP (occurrence: JP)
  Receive Date: 20190603
  Receipt Date: 20190624
  Transmission Date: 20190711
  Serious: Yes (Other)
  Sender: FDA-Public Use
  Company Number: JP-PFIZER INC-2019227013

PATIENT
  Age: 41 Year
  Sex: Female

DRUGS (27)
  1. ONETRAM [Concomitant]
     Active Substance: TRAMADOL HYDROCHLORIDE
     Dosage: 100 MG, UNK
     Dates: end: 20190308
  2. SEROQUEL [Concomitant]
     Active Substance: QUETIAPINE FUMARATE
     Dosage: 200 MG, AS NEEDED
     Dates: end: 20181207
  3. NEOMALLERMIN [Suspect]
     Active Substance: DEXCHLORPHENIRAMINE MALEATE
     Dosage: 12 MG, UNK (ONE TIME DOSE)
     Route: 048
  4. MAGNESIUM OXIDE. [Concomitant]
     Active Substance: MAGNESIUM OXIDE
  5. MEILAX [Concomitant]
     Active Substance: ETHYL LOFLAZEPATE
     Dosage: 1 MG, AS NEEDED (ONE TIME DOSE: 1T PRN)
  6. UBRETID [Concomitant]
     Active Substance: DISTIGMINE BROMIDE
     Dosage: 5 MG, UNK
     Dates: start: 20180209
  7. TRAZODONE [Concomitant]
     Active Substance: TRAZODONE HYDROCHLORIDE
     Dosage: 50 MG, UNK
     Dates: end: 20190201
  8. ZYPREXA ZYDIS [Suspect]
     Active Substance: OLANZAPINE
     Dosage: 1 MG, AS NEEDED (ONE TIME DOSE: 1T PRN)
  9. BENZALIN [NITRAZEPAM] [Concomitant]
     Active Substance: NITRAZEPAM
     Dosage: 0.5 DF, UNK
  10. FLUNITRAZEPAM AMEL [Concomitant]
     Active Substance: FLUNITRAZEPAM
     Dosage: UNK
     Dates: end: 20181207
  11. GASSAAL [DIMETICONE] [Concomitant]
     Dosage: 120 MG, UNK
     Route: 048
  12. LOXONIN [Concomitant]
     Active Substance: LOXOPROFEN SODIUM
     Dosage: ONE TIME DOSE: 1T (PRN)
  13. MUCOSTA [Concomitant]
     Active Substance: REBAMIPIDE
     Dosage: 1 DF, AS NEEDED (ONE TIME DOSE: 1T PRN)
  14. NEXIUM [Concomitant]
     Active Substance: ESOMEPRAZOLE MAGNESIUM
     Dosage: 20 MG, UNK
     Route: 048
  15. STROCAIN [OXETACAINE] [Concomitant]
     Dosage: 15 MG, DAILY
     Route: 048
  16. SENNOSIDE [SENNOSIDE A+B] [Concomitant]
     Active Substance: SENNOSIDES A AND B
     Dosage: 4 MG, UNK
  17. BUSCOPAN [Concomitant]
     Active Substance: BUTYLSCOPOLAMINE BROMIDE
     Dosage: 10 MG, UNK
     Dates: end: 20190308
  18. MOSAPRIDE CITRATE [Concomitant]
     Active Substance: MOSAPRIDE CITRATE
     Dosage: 15 MG, DAILY
     Route: 048
  19. NAUZELIN [Concomitant]
     Active Substance: DOMPERIDONE
     Dosage: 10 MG, UNK
     Dates: end: 20190308
  20. SEROQUEL [Concomitant]
     Active Substance: QUETIAPINE FUMARATE
     Dosage: 200 MG, AS NEEDED
  21. TELEMIN SOFT [Concomitant]
     Dosage: UNK
  22. ATARAX-P 25MG [Suspect]
     Active Substance: HYDROXYZINE HYDROCHLORIDE
     Dosage: 25 MG, UNK
     Route: 048
  23. AZULENE-GLUTAMINE [Concomitant]
  24. MIYA-BM [Concomitant]
     Active Substance: CLOSTRIDIUM BUTYRICUM SPORES STRAIN M-55
  25. TRAMCET [Concomitant]
     Active Substance: ACETAMINOPHEN\TRAMADOL
  26. XYZAL [Concomitant]
     Active Substance: LEVOCETIRIZINE DIHYDROCHLORIDE
     Dosage: 10 MG, UNK
     Route: 048
  27. DUROTEP [Concomitant]
     Active Substance: FENTANYL
     Dosage: 4.2 MG, UNK

REACTIONS (4)
  - Intestinal obstruction [Unknown]
  - Drug ineffective [Unknown]
  - Drug intolerance [Unknown]
  - Abdominal adhesions [Unknown]

NARRATIVE: CASE EVENT DATE: 2019
